FAERS Safety Report 4752157-0 (Version None)
Quarter: 2005Q3

REPORT INFORMATION
  Report Type: 
  Country: None (occurrence: None)
  Receive Date: 20050825
  Receipt Date: 20050726
  Transmission Date: 20060218
  Serious: Yes (Other)
  Sender: FDA-Public Use
  Company Number: US-AMGEN-US144074

PATIENT
  Sex: Female
  Weight: 66 kg

DRUGS (7)
  1. EPOGEN [Suspect]
     Indication: DIALYSIS
     Route: 040
     Dates: start: 20031219, end: 20050726
  2. ARANESP [Suspect]
     Indication: DIALYSIS
     Route: 058
     Dates: start: 20050802, end: 20050802
  3. ZEMPLAR [Suspect]
     Route: 040
     Dates: start: 20040420, end: 20050628
  4. HECTORAL [Suspect]
     Route: 048
     Dates: start: 20050629, end: 20050726
  5. ATENOLOL [Concomitant]
     Route: 048
     Dates: start: 20050719
  6. SYNTHROID [Concomitant]
     Route: 048
     Dates: start: 20050517
  7. NOVOLIN R [Concomitant]
     Dates: start: 20031229

REACTIONS (7)
  - COUGH [None]
  - FEELING ABNORMAL [None]
  - HYPERSENSITIVITY [None]
  - PRURITUS GENERALISED [None]
  - RASH [None]
  - RESPIRATORY DISTRESS [None]
  - THROAT TIGHTNESS [None]
